FAERS Safety Report 5206299-6 (Version None)
Quarter: 2007Q1

REPORT INFORMATION
  Report Type: 
  Country: None (occurrence: None)
  Receive Date: 20070111
  Receipt Date: 20070108
  Transmission Date: 20070707
  Serious: Yes (Death, Hospitalization)
  Sender: FDA-Public Use
  Company Number: FR-BOEHRINGER INGELHEIM PHARMACEUTICALS, INC.-2007-FF-00019FF

PATIENT
  Age: 83 Year
  Sex: Male

DRUGS (6)
  1. MICARDIS [Suspect]
     Indication: HYPERTENSION
     Route: 048
     Dates: end: 20060608
  2. ASPIRIN [Concomitant]
     Indication: HYPERTENSIVE CARDIOMYOPATHY
     Route: 048
     Dates: end: 20060608
  3. OMEPRAZOLE [Concomitant]
     Route: 048
  4. TEMGESIC [Concomitant]
     Indication: BRAIN NEOPLASM
     Route: 048
  5. NITRODERM [Concomitant]
     Indication: ISCHAEMIC CARDIOMYOPATHY
     Route: 062
     Dates: end: 20060618
  6. HEMIGOXINE NATIVELLE [Concomitant]
     Indication: HYPERTENSIVE CARDIOMYOPATHY
     Route: 048
     Dates: end: 20060608

REACTIONS (2)
  - CONGESTIVE CARDIOMYOPATHY [None]
  - HYPERTHYROIDISM [None]
